FAERS Safety Report 12816741 (Version 2)
Quarter: 2019Q3

REPORT INFORMATION
  Report Type: Spontaneous
  Country: US (occurrence: US)
  Receive Date: 20161006
  Receipt Date: 20190923
  Transmission Date: 20191004
  Serious: No
  Sender: FDA-Public Use
  Company Number: US-NOVEN PHARMACEUTICALS, INC.-US2016001575

PATIENT

DRUGS (9)
  1. COMBIPATCH [Suspect]
     Active Substance: ESTRADIOL\NORETHINDRONE ACETATE
     Dosage: CUTTING 50/250 MG PATCH INTO HALF, MONDAY AND THURSDAY, SEE TEXT
     Route: 062
  2. COMBIPATCH [Suspect]
     Active Substance: ESTRADIOL\NORETHINDRONE ACETATE
     Dosage: 50/250 MG, UNKNOWN
  3. TRAMADOL. [Concomitant]
     Active Substance: TRAMADOL
     Indication: FIBROMYALGIA
  4. COMBIPATCH [Suspect]
     Active Substance: ESTRADIOL\NORETHINDRONE ACETATE
     Indication: HOT FLUSH
     Dosage: 50/250 MG, MONDAY AND THURSDAY
     Route: 062
     Dates: start: 2013
  5. ESTROGEN [Concomitant]
     Active Substance: ESTROGENS
     Indication: CYSTITIS
  6. ATIVAN [Concomitant]
     Active Substance: LORAZEPAM
     Indication: FIBROMATOSIS
  7. COMBIPATCH [Suspect]
     Active Substance: ESTRADIOL\NORETHINDRONE ACETATE
     Indication: INSOMNIA
     Dosage: CUTTING 50/250 MG PATCH INTO HALF, MONDAY AND THURSDAY
     Route: 062
  8. TRAMADOL. [Concomitant]
     Active Substance: TRAMADOL
     Indication: FIBROMATOSIS
     Dosage: 50 MG, BID
  9. SYNTHROID [Concomitant]
     Active Substance: LEVOTHYROXINE SODIUM

REACTIONS (14)
  - Wrong technique in product usage process [Recovered/Resolved]
  - Arthropod bite [Unknown]
  - Application site erythema [Not Recovered/Not Resolved]
  - Application site swelling [Recovered/Resolved]
  - Product adhesion issue [Recovered/Resolved]
  - Off label use [Not Recovered/Not Resolved]
  - Product storage error [Not Recovered/Not Resolved]
  - Abdominal pain upper [Unknown]
  - Application site pruritus [Recovered/Resolved]
  - Hot flush [Unknown]
  - Application site irritation [Recovered/Resolved]
  - Drug ineffective [Unknown]
  - Product administered at inappropriate site [Not Recovered/Not Resolved]
  - Application site pain [Recovered/Resolved]

NARRATIVE: CASE EVENT DATE: 2013
